FAERS Safety Report 20143828 (Version 1)
Quarter: 2021Q4

REPORT INFORMATION
  Report Type: Spontaneous
  Country: DE (occurrence: None)
  Receive Date: 20211203
  Receipt Date: 20211203
  Transmission Date: 20220303
  Serious: Yes (Hospitalization, Other)
  Sender: FDA-Public Use
  Company Number: 2021A849136

PATIENT
  Age: 65 Year
  Sex: Female

DRUGS (2)
  1. SYMBICORT [Suspect]
     Active Substance: BUDESONIDE\FORMOTEROL FUMARATE DIHYDRATE
     Indication: Chronic obstructive pulmonary disease
     Dosage: 320/9, UNKNOWN
     Route: 055
     Dates: start: 2013
  2. ROFLUMILAST [Suspect]
     Active Substance: ROFLUMILAST
     Indication: Chronic obstructive pulmonary disease
     Route: 048
     Dates: start: 201708

REACTIONS (10)
  - Infection [Unknown]
  - Weight decreased [Unknown]
  - Condition aggravated [Unknown]
  - Panic disorder [Unknown]
  - Secretion discharge [Unknown]
  - Oedema peripheral [Unknown]
  - Renal failure [Unknown]
  - Dyspnoea [Unknown]
  - Diarrhoea [Unknown]
  - Therapeutic product effect incomplete [Unknown]

NARRATIVE: CASE EVENT DATE: 20140101
